FAERS Safety Report 17527472 (Version 1)
Quarter: 2020Q1

REPORT INFORMATION
  Report Type: Spontaneous
  Country: US (occurrence: US)
  Receive Date: 20200311
  Receipt Date: 20200311
  Transmission Date: 20200409
  Serious: No
  Sender: FDA-Public Use
  Company Number: None

PATIENT
  Sex: Female

DRUGS (1)
  1. MECLIZINE [Suspect]
     Active Substance: MECLIZINE HYDROCHLORIDE

REACTIONS (6)
  - Headache [None]
  - Dizziness [None]
  - Asthenia [None]
  - Multiple sclerosis relapse [None]
  - Tremor [None]
  - Lymphocyte count decreased [None]
